FAERS Safety Report 5165857-8 (Version None)
Quarter: 2006Q4

REPORT INFORMATION
  Report Type: 
  Country: None (occurrence: None)
  Receive Date: 20061128
  Receipt Date: 20061116
  Transmission Date: 20070319
  Serious: Yes (Life-Threatening)
  Sender: FDA-Public Use
  Company Number: 232255

PATIENT
  Age: 65 Year
  Sex: Male

DRUGS (3)
  1. ACILYSE (ALTEPLASE)PWDR + SOLVENT, INFUSION SOLN [Suspect]
     Indication: CEREBRAL INFARCTION
     Dosage: 60 MG, SINGLE, INTRAVENOUS
     Route: 042
     Dates: start: 20060831, end: 20060831
  2. ASPIRIN [Suspect]
     Indication: DRUG USE FOR UNKNOWN INDICATION
     Dosage: 100 MG, ORAL
     Route: 048
     Dates: end: 20060831
  3. CLOPIDOGREL [Suspect]
     Indication: DRUG USE FOR UNKNOWN INDICATION
     Dosage: 75 MG, ORAL
     Route: 048
     Dates: end: 20060831

REACTIONS (8)
  - BRAIN OEDEMA [None]
  - CEREBRAL HAEMORRHAGE [None]
  - CONDITION AGGRAVATED [None]
  - DEPRESSED LEVEL OF CONSCIOUSNESS [None]
  - HEMIPARESIS [None]
  - OPERATIVE HAEMORRHAGE [None]
  - PUPILS UNEQUAL [None]
  - VENTRICULAR FIBRILLATION [None]
